FAERS Safety Report 8199275-5 (Version None)
Quarter: 2012Q1

REPORT INFORMATION
  Report Type: 
  Country: None (occurrence: None)
  Receive Date: 20120309
  Receipt Date: 20120305
  Transmission Date: 20120608
  Serious: Yes (Disabling)
  Sender: FDA-Public Use
  Company Number: GB-PFIZER INC-2012059247

PATIENT
  Age: 56 Year
  Sex: Female

DRUGS (2)
  1. AZITHROMYCIN [Suspect]
     Indication: PROPHYLAXIS
     Dosage: 250 MG, 2X/DAY
     Route: 048
     Dates: end: 20120216
  2. GENTAMICIN [Suspect]

REACTIONS (2)
  - OTOTOXICITY [None]
  - DEAFNESS [None]
